FAERS Safety Report 17835373 (Version 1)
Quarter: 2020Q2

REPORT INFORMATION
  Report Type: Spontaneous
  Country: GB (occurrence: GB)
  Receive Date: 20200528
  Receipt Date: 20200528
  Transmission Date: 20200714
  Serious: Yes (Other)
  Sender: FDA-Public Use
  Company Number: GB-ACCORD-180951

PATIENT
  Age: 49 Year
  Sex: Female

DRUGS (1)
  1. CLOZAPINE. [Suspect]
     Active Substance: CLOZAPINE
     Indication: SCHIZOAFFECTIVE DISORDER
     Dosage: MAINTENANCE DOSE WAS 300 MG
     Dates: start: 1998

REACTIONS (1)
  - Somnambulism [Recovering/Resolving]

NARRATIVE: CASE EVENT DATE: 201609
